FAERS Safety Report 16080200 (Version 3)
Quarter: 2020Q1

REPORT INFORMATION
  Report Type: Report from Study
  Country: US (occurrence: US)
  Receive Date: 20190315
  Receipt Date: 20200218
  Transmission Date: 20200409
  Serious: Yes (Death, Hospitalization, Other)
  Sender: FDA-Public Use
  Company Number: US-ACTELION-A-US2019-185766

PATIENT
  Age: 58 Year
  Sex: Female
  Weight: 102.04 kg

DRUGS (31)
  1. BUTALBITAL APAP CAFFEINE [Concomitant]
     Active Substance: ACETAMINOPHEN\BUTALBITAL\CAFFEINE
     Dosage: 50-325-40 MG
  2. CARVEDILOL. [Concomitant]
     Active Substance: CARVEDILOL
     Dosage: 12.5 MG
  3. TADALAFIL. [Concomitant]
     Active Substance: TADALAFIL
     Dosage: 20 MG
  4. HYPROMELLOSE [Concomitant]
     Active Substance: HYPROMELLOSES
     Dosage: 1 DROP TO EYE (S)DAILY
  5. OPSUMIT [Suspect]
     Active Substance: MACITENTAN
     Indication: PULMONARY ARTERIAL HYPERTENSION
     Dosage: 10 MG, QD
     Route: 048
  6. OPSUMIT [Suspect]
     Active Substance: MACITENTAN
     Dosage: 10 MG, QD
     Route: 048
  7. NITROFURANTOIN. [Concomitant]
     Active Substance: NITROFURANTOIN
     Dosage: 100 MG, Q12HRS
     Dates: start: 20190307, end: 20190308
  8. WARFARIN [Concomitant]
     Active Substance: WARFARIN
     Dosage: 5 MG HALF A TAB EVERY MORNING EXCEPT SUNDAYS
  9. UPTRAVI [Suspect]
     Active Substance: SELEXIPAG
     Indication: PULMONARY ARTERIAL HYPERTENSION
     Dosage: 1600 MCG, BID
     Route: 048
     Dates: start: 20181205, end: 20191129
  10. BESIFLOXACIN HYDROCHLORIDE [Concomitant]
     Active Substance: BESIFLOXACIN HYDROCHLORIDE
     Dosage: 0.6 %
  11. ACULAR [Concomitant]
     Active Substance: KETOROLAC TROMETHAMINE
     Dosage: 1 DROP INTO THE RIGHT EYE 4X DAILY
     Dates: start: 20180606
  12. ALLOPURINOL. [Concomitant]
     Active Substance: ALLOPURINOL
     Dosage: 100 MG, QD
  13. AMIODARONE [Concomitant]
     Active Substance: AMIODARONE
     Dosage: 200 MG, QD
  14. DIFLUPREDNATE [Concomitant]
     Active Substance: DIFLUPREDNATE
     Dosage: 0.05 %
  15. VITAMIN B12 [Concomitant]
     Active Substance: CYANOCOBALAMIN
     Dosage: 1000 MCG
  16. FUROSEMIDE. [Concomitant]
     Active Substance: FUROSEMIDE
     Dosage: 20 MG, QD
  17. ARTIFICIAL TEARS [Concomitant]
     Active Substance: GLYCERIN\HYPROMELLOSES\POLYETHYLENE GLYCOL 400
  18. LEVOTHYROXINE. [Concomitant]
     Active Substance: LEVOTHYROXINE
     Dosage: 100 MCG, QD
  19. MEGESTROL [Concomitant]
     Active Substance: MEGESTROL
     Dosage: 20 MG
  20. ASPIRIN. [Concomitant]
     Active Substance: ASPIRIN
     Dosage: 81 MG
     Route: 048
     Dates: start: 20100908
  21. ROBITUSSIN (GUAIFENESIN) [Concomitant]
     Active Substance: GUAIFENESIN
  22. CYANOCOBALAMIN. [Concomitant]
     Active Substance: CYANOCOBALAMIN
     Dosage: 1000 MCG
  23. KETOROLAC [Concomitant]
     Active Substance: KETOROLAC TROMETHAMINE
     Dosage: 0.5 %
  24. TADALAFIL. [Concomitant]
     Active Substance: TADALAFIL
     Dosage: 20 MG, BID
  25. BESIFLOXACIN HYDROCHLORIDE [Concomitant]
     Active Substance: BESIFLOXACIN HYDROCHLORIDE
     Dosage: 0.6 %
     Dates: start: 20180605
  26. ATORVASTATIN [Concomitant]
     Active Substance: ATORVASTATIN
     Dosage: 80 MG
  27. BROMFENAC SODIUM [Concomitant]
     Active Substance: BROMFENAC SODIUM
     Dosage: 0.075 %
  28. CARVEDILOL. [Concomitant]
     Active Substance: CARVEDILOL
     Dosage: 6.25 MG, BID
  29. FERROUS SULFATE. [Concomitant]
     Active Substance: FERROUS SULFATE
     Dosage: 325 MG
  30. AMLODIPINE [Concomitant]
     Active Substance: AMLODIPINE BESYLATE
     Dosage: 2.5 MG
     Route: 048
  31. FIORICET [Concomitant]
     Active Substance: ACETAMINOPHEN\BUTALBITAL\CAFFEINE
     Indication: HEADACHE
     Dosage: 50-40-325MG
     Dates: start: 20190307

REACTIONS (26)
  - Acute kidney injury [Recovered/Resolved]
  - Influenza [Recovering/Resolving]
  - Pruritus [Unknown]
  - Rhinorrhoea [Recovered/Resolved]
  - Prothrombin level abnormal [Unknown]
  - Carbon dioxide decreased [Unknown]
  - Blood urea increased [Unknown]
  - Cough [Recovering/Resolving]
  - Dysuria [Unknown]
  - Sinusitis [Recovering/Resolving]
  - Haemoglobin decreased [Unknown]
  - International normalised ratio increased [Unknown]
  - Haematocrit increased [Unknown]
  - Death [Fatal]
  - Urinary tract infection [Recovering/Resolving]
  - Hypoxia [Recovering/Resolving]
  - Pulmonary hypertension [Unknown]
  - Cardiac murmur [Unknown]
  - Blood creatinine increased [Unknown]
  - Nasal congestion [Unknown]
  - Oropharyngeal pain [Unknown]
  - Headache [Unknown]
  - Back pain [Recovered/Resolved]
  - Fluid overload [Unknown]
  - Malaise [Unknown]
  - Blood chloride increased [Unknown]

NARRATIVE: CASE EVENT DATE: 20190117
